FAERS Safety Report 8513593-X (Version None)
Quarter: 2012Q3

REPORT INFORMATION
  Report Type: 
  Country: None (occurrence: None)
  Receive Date: 20120717
  Receipt Date: 20120711
  Transmission Date: 20120928
  Serious: No
  Sender: FDA-Public Use
  Company Number: US-PFIZER INC-2012168727

PATIENT

DRUGS (1)
  1. FLECTOR [Suspect]
     Dosage: UNK
     Route: 062

REACTIONS (1)
  - CHEST PAIN [None]
